FAERS Safety Report 12431504 (Version 5)
Quarter: 2016Q2

REPORT INFORMATION
  Report Type: Spontaneous
  Country: PA (occurrence: PA)
  Receive Date: 20160603
  Receipt Date: 20160621
  Transmission Date: 20160815
  Serious: Yes (Death, Life-Threatening, Other)
  Sender: FDA-Public Use
  Company Number: PA-ROCHE-1769056

PATIENT
  Sex: Female

DRUGS (5)
  1. PACLITAXEL. [Suspect]
     Active Substance: PACLITAXEL
     Route: 065
     Dates: start: 20160428, end: 20160512
  2. HERCEPTIN [Suspect]
     Active Substance: TRASTUZUMAB
     Indication: BREAST CANCER
     Dosage: 4 CYCLES OF 3 WEEKS EACH ONE
     Route: 058
     Dates: start: 20160217, end: 20160428
  3. PACLITAXEL. [Suspect]
     Active Substance: PACLITAXEL
     Indication: PRODUCT USED FOR UNKNOWN INDICATION
     Dosage: DURING 4 CYCLES (12 APPLICATIONS)
     Route: 065
     Dates: start: 20160217
  4. PERJETA [Suspect]
     Active Substance: PERTUZUMAB
     Dosage: 1 CYCLE OF 3 WEEKS EACH ONE
     Route: 042
     Dates: start: 20160428, end: 20160428
  5. PERJETA [Suspect]
     Active Substance: PERTUZUMAB
     Indication: BREAST CANCER
     Dosage: 3 CYCLES OF 3 WEEKS EACH ONE
     Route: 042
     Dates: start: 20160217

REACTIONS (12)
  - Sepsis [Fatal]
  - Respiratory failure [Fatal]
  - Off label use [Unknown]
  - Respiratory failure [Unknown]
  - Renal failure [Fatal]
  - Cutaneous vasculitis [Not Recovered/Not Resolved]
  - Pulmonary vasculitis [Not Recovered/Not Resolved]
  - Renal vasculitis [Not Recovered/Not Resolved]
  - Skin lesion [Unknown]
  - Multiple organ dysfunction syndrome [Not Recovered/Not Resolved]
  - Thrombocytopenia [Unknown]
  - Neoplasm [Unknown]

NARRATIVE: CASE EVENT DATE: 201605
